FAERS Safety Report 5343889-4 (Version None)
Quarter: 2007Q2

REPORT INFORMATION
  Report Type: 
  Country: None (occurrence: None)
  Receive Date: 20070531
  Receipt Date: 20070514
  Transmission Date: 20071010
  Serious: Yes (Other)
  Sender: FDA-Public Use
  Company Number: US-1163066

PATIENT

DRUGS (3)
  1. BSS [Suspect]
     Dosage: (INTRAOCULAR) , (INTRAOCULAR)
     Route: 031
     Dates: start: 20070501, end: 20070501
  2. BSS [Suspect]
     Dosage: (INTRAOCULAR) , (INTRAOCULAR)
     Route: 031
     Dates: start: 20070501, end: 20070501
  3. BSS [Suspect]

REACTIONS (1)
  - POST PROCEDURAL INFECTION [None]
